FAERS Safety Report 5745647-5 (Version None)
Quarter: 2008Q2

REPORT INFORMATION
  Report Type: 
  Country: None (occurrence: None)
  Receive Date: 20080521
  Receipt Date: 20080509
  Transmission Date: 20081010
  Serious: Yes (Other)
  Sender: FDA-Public Use
  Company Number: SE-PFIZER INC-2008027967

PATIENT
  Sex: Female
  Weight: 90 kg

DRUGS (4)
  1. LYRICA [Suspect]
     Dosage: DAILY DOSE:75MG
     Route: 048
  2. ALL OTHER THERAPEUTIC PRODUCTS [Concomitant]
  3. CYMBALTA [Concomitant]
  4. ATARAX [Concomitant]

REACTIONS (1)
  - POLYURIA [None]
